FAERS Safety Report 8512243-6 (Version None)
Quarter: 2012Q3

REPORT INFORMATION
  Report Type: 
  Country: None (occurrence: None)
  Receive Date: 20120716
  Receipt Date: 20120702
  Transmission Date: 20120928
  Serious: Yes (Hospitalization)
  Sender: FDA-Public Use
  Company Number: KP-ROCHE-1083316

PATIENT
  Sex: Female
  Weight: 47.9 kg

DRUGS (4)
  1. CISPLATIN [Suspect]
     Indication: BREAST CANCER
     Dosage: DATE OF LAST DOSE PRIOR TO SAE: 14/JUN/2012
     Route: 042
     Dates: start: 20120329
  2. HERCEPTIN [Suspect]
     Indication: BREAST CANCER
     Dosage: DATE OF LAST DOSE PRIOR TO SAE: 14/JUN/2012
     Route: 042
     Dates: start: 20120329
  3. PERTUZUMAB [Suspect]
     Indication: BREAST CANCER
     Dosage: DATE OF LAST DOSE PRIOR TO SAE: 14/JUN/2012
     Route: 042
     Dates: start: 20120329
  4. XELODA [Suspect]
     Indication: BREAST CANCER
     Dosage: DATE OF LAST DOSE PRIOR TO SAE: 28/JUN/2012
     Route: 048
     Dates: start: 20120329

REACTIONS (2)
  - MUCOSAL INFLAMMATION [None]
  - FEBRILE NEUTROPENIA [None]
